FAERS Safety Report 8107305-1 (Version None)
Quarter: 2012Q1

REPORT INFORMATION
  Report Type: 
  Country: None (occurrence: None)
  Receive Date: 20120202
  Receipt Date: 20120130
  Transmission Date: 20120608
  Serious: Yes (Other)
  Sender: FDA-Public Use
  Company Number: KR-PFIZER INC-2012025105

PATIENT
  Sex: Male

DRUGS (2)
  1. DOXOFYLLINE [Concomitant]
     Dosage: UNK
     Route: 048
  2. LYRICA [Suspect]
     Indication: PERIPHERAL PARALYSIS
     Dosage: 150 MG, UNK
     Route: 048

REACTIONS (10)
  - PARALYSIS [None]
  - VOMITING [None]
  - FEELING ABNORMAL [None]
  - EYES SUNKEN [None]
  - ASTHENIA [None]
  - MUSCULOSKELETAL STIFFNESS [None]
  - MUSCLE TWITCHING [None]
  - GAIT DISTURBANCE [None]
  - GENERAL PHYSICAL CONDITION ABNORMAL [None]
  - THROAT IRRITATION [None]
